FAERS Safety Report 10147252 (Version 1)
Quarter: 2014Q2

REPORT INFORMATION
  Report Type: Spontaneous
  Country: US (occurrence: US)
  Receive Date: 20140501
  Receipt Date: 20140501
  Transmission Date: 20141212
  Serious: Yes (Life-Threatening, Hospitalization)
  Sender: FDA-Public Use
  Company Number: US-SA-2013SA133714

PATIENT
  Age: 33 Year
  Sex: Female
  Weight: 119.65 kg

DRUGS (3)
  1. HECTOROL [Suspect]
     Indication: HYPERPARATHYROIDISM
     Route: 042
     Dates: start: 20131213
  2. VENOFER [Concomitant]
  3. EPOGEN [Concomitant]

REACTIONS (2)
  - Dyspnoea [Recovering/Resolving]
  - Throat tightness [Recovering/Resolving]
